FAERS Safety Report 4451297-3 (Version None)
Quarter: 2004Q3

REPORT INFORMATION
  Report Type: 
  Country: None (occurrence: None)
  Receive Date: 20040913
  Receipt Date: 20040709
  Transmission Date: 20050211
  Serious: No
  Sender: FDA-Public Use
  Company Number: 2004-BP-05553BP(0)

PATIENT
  Age: 83 Year
  Sex: Female
  Weight: 75.8 kg

DRUGS (10)
  1. SPIRIVA [Suspect]
     Dosage: 18 MCG (18 MCG), IH
     Dates: start: 20040615, end: 20040626
  2. GLUCOTROL [Concomitant]
  3. COVOCALTS [Concomitant]
  4. GLUCOPHAGE [Concomitant]
  5. ACETYLSALICYLIC ACID SRT [Concomitant]
  6. MONOPRIL [Concomitant]
  7. ACTOS [Concomitant]
  8. LOVASTATIN [Concomitant]
  9. NASACORT AQ [Concomitant]
  10. PROTONIX [Concomitant]

REACTIONS (2)
  - CHEST PAIN [None]
  - ORAL DISCOMFORT [None]
